FAERS Safety Report 21297858 (Version 1)
Quarter: 2022Q3

REPORT INFORMATION
  Report Type: Report from Study
  Country: US (occurrence: US)
  Receive Date: 20220906
  Receipt Date: 20220906
  Transmission Date: 20221026
  Serious: Yes (Hospitalization, Other)
  Sender: FDA-Public Use
  Company Number: US-BAYER-2022A121936

PATIENT
  Age: 1 Year
  Sex: Male
  Weight: 7.71 kg

DRUGS (4)
  1. ADEMPAS [Suspect]
     Active Substance: RIOCIGUAT
     Indication: Pulmonary arterial hypertension
     Dosage: UNK
     Dates: start: 20220729
  2. ADEMPAS [Suspect]
     Active Substance: RIOCIGUAT
     Indication: Pulmonary arterial hypertension
     Dosage: 2 MG, TID
     Route: 048
  3. TRACLEER [Concomitant]
     Active Substance: BOSENTAN
     Dosage: UNK
  4. REMODULIN [Concomitant]
     Active Substance: TREPROSTINIL
     Dosage: UNK

REACTIONS (6)
  - Retching [Unknown]
  - Haemoptysis [Unknown]
  - Oesophageal rupture [None]
  - Hospitalisation [None]
  - Gastrooesophageal reflux disease [None]
  - Product administered to patient of inappropriate age [None]

NARRATIVE: CASE EVENT DATE: 20220816
